FAERS Safety Report 10652677 (Version 1)
Quarter: 2014Q4

REPORT INFORMATION
  Report Type: Spontaneous
  Country: SE (occurrence: SE)
  Receive Date: 20141215
  Receipt Date: 20141215
  Transmission Date: 20150529
  Serious: Yes (Hospitalization)
  Sender: FDA-Public Use
  Company Number: SE-TEVA-528709ISR

PATIENT
  Age: 66 Year
  Sex: Male

DRUGS (6)
  1. OXALIPLATIN TEVA 5 MG/ML [Suspect]
     Active Substance: OXALIPLATIN
     Indication: COLON CANCER
     Dosage: 40 ML+10ML
     Dates: start: 20141119, end: 20141119
  2. TAVEGYL [Concomitant]
     Active Substance: CLEMASTINE FUMARATE
  3. KLEXANE 150 MG/ML INJEKTIONSV?TSKA, L?SNING, F?RFYLLD SPRUTA [Concomitant]
  4. ONDANSETRON AUROBINDO 4 MG FILMDRAGERAD TABLETT [Concomitant]
  5. OMEPRAZOLE. [Concomitant]
     Active Substance: OMEPRAZOLE
  6. BETAPRED 0,5 MG TABLETT [Concomitant]

REACTIONS (6)
  - Tachycardia [Recovered/Resolved]
  - Depressed level of consciousness [Recovered/Resolved]
  - Erythema [Recovered/Resolved]
  - Abdominal pain [Recovered/Resolved]
  - Blood pressure decreased [Recovered/Resolved]
  - Oxygen saturation decreased [Recovered/Resolved]

NARRATIVE: CASE EVENT DATE: 20141119
